FAERS Safety Report 5911438-5 (Version None)
Quarter: 2008Q4

REPORT INFORMATION
  Report Type: 
  Country: None (occurrence: None)
  Receive Date: 20081007
  Receipt Date: 20080925
  Transmission Date: 20090506
  Serious: Yes (Hospitalization)
  Sender: FDA-Public Use
  Company Number: US-PFIZER INC-2008080816

PATIENT
  Sex: Male
  Weight: 88 kg

DRUGS (14)
  1. SUTENT [Suspect]
     Indication: RENAL CELL CARCINOMA
     Route: 048
     Dates: start: 20080825
  2. ERLOTINIB [Suspect]
     Indication: RENAL CELL CARCINOMA
     Route: 048
     Dates: start: 20080825
  3. TESSALON [Concomitant]
     Route: 048
  4. CLINDAMYCIN HCL [Concomitant]
     Dosage: TEXT:1%
     Route: 061
  5. LOMOTIL [Concomitant]
     Dosage: TEXT:2.5- 0.025 MG
     Route: 048
  6. GUAIFENESIN [Concomitant]
     Dosage: TEXT:100 MG/ 5 ML
     Route: 048
  7. HYCODAN [Concomitant]
     Dosage: TEXT:5-1.5 MG/ 5 ML
     Route: 048
  8. IMODIUM A-D [Concomitant]
     Route: 048
  9. LOPERAMIDE HCL [Concomitant]
     Route: 048
  10. CLARITIN [Concomitant]
     Route: 048
  11. OXYCODONE HCL [Concomitant]
     Route: 048
  12. OXYCODONE HCL [Concomitant]
     Route: 048
  13. SORBITOL [Concomitant]
     Dosage: TEXT:70% MISC.
  14. LEVITRA [Concomitant]
     Route: 048

REACTIONS (19)
  - ALANINE AMINOTRANSFERASE [None]
  - ANOREXIA [None]
  - ASPARTATE AMINOTRANSFERASE [None]
  - BLOOD ALBUMIN [None]
  - BLOOD ALKALINE PHOSPHATASE [None]
  - BLOOD BILIRUBIN [None]
  - BLOOD CALCIUM [None]
  - BLOOD CREATININE [None]
  - BLOOD MAGNESIUM [None]
  - BLOOD PHOSPHORUS [None]
  - BLOOD SODIUM [None]
  - COUGH [None]
  - DYSGEUSIA [None]
  - FATIGUE [None]
  - HYPERGLYCAEMIA [None]
  - LYMPHOCYTE COUNT [None]
  - MUSCULOSKELETAL STIFFNESS [None]
  - PLATELET DISORDER [None]
  - RASH [None]
